FAERS Safety Report 8585584-4 (Version None)
Quarter: 2012Q3

REPORT INFORMATION
  Report Type: 
  Country: None (occurrence: None)
  Receive Date: 20120810
  Receipt Date: 20120803
  Transmission Date: 20120928
  Serious: Yes (Life-Threatening)
  Sender: FDA-Public Use
  Company Number: CA-JNJFOC-20120801825

PATIENT
  Sex: Female
  Weight: 93 kg

DRUGS (5)
  1. REMICADE [Suspect]
     Indication: CROHN'S DISEASE
     Route: 042
     Dates: start: 20111208
  2. BIRTH CONTROL PILLS [Suspect]
     Indication: CONTRACEPTION
     Route: 065
     Dates: start: 20120601
  3. TOPAMAX [Concomitant]
     Route: 065
  4. WARFARIN SODIUM [Concomitant]
     Route: 065
     Dates: start: 20120622
  5. CETIRIZINE HCL [Concomitant]
     Route: 065

REACTIONS (2)
  - PULMONARY EMBOLISM [None]
  - PHLEBITIS [None]
